FAERS Safety Report 4308825-8 (Version None)
Quarter: 2004Q1

REPORT INFORMATION
  Report Type: 
  Country: None (occurrence: None)
  Receive Date: 20040227
  Receipt Date: 20040220
  Transmission Date: 20041129
  Serious: Yes (Death)
  Sender: FDA-Public Use
  Company Number: US-JNJFOC-20040205020

PATIENT
  Age: 37 Year
  Sex: Female

DRUGS (1)
  1. DURAGESIC [Suspect]
     Indication: PAIN
     Dosage: INJECTION
     Dates: end: 20031201

REACTIONS (2)
  - INTENTIONAL MISUSE [None]
  - OVERDOSE [None]
